FAERS Safety Report 21456202 (Version 4)
Quarter: 2022Q4

REPORT INFORMATION
  Report Type: Spontaneous
  Country: US (occurrence: US)
  Receive Date: 20221014
  Receipt Date: 20221215
  Transmission Date: 20230113
  Serious: No
  Sender: FDA-Public Use
  Company Number: US-GSK-US2022AMR144690

PATIENT
  Sex: Female

DRUGS (1)
  1. FLUTICASONE PROPIONATE\SALMETEROL XINAFOATE [Suspect]
     Active Substance: FLUTICASONE PROPIONATE\SALMETEROL XINAFOATE
     Indication: Product used for unknown indication
     Dosage: UNK 500/50 MCG, 60

REACTIONS (5)
  - Anxiety [Unknown]
  - Condition aggravated [Unknown]
  - Product dose omission issue [Unknown]
  - Drug ineffective [Unknown]
  - Product complaint [Unknown]
